FAERS Safety Report 9341107 (Version 1)
Quarter: 2013Q2

REPORT INFORMATION
  Report Type: Spontaneous
  Country: BR (occurrence: BR)
  Receive Date: 20130610
  Receipt Date: 20130610
  Transmission Date: 20140414
  Serious: Yes (Other)
  Sender: FDA-Public Use
  Company Number: BR-ELI_LILLY_AND_COMPANY-BR201306000582

PATIENT
  Sex: Female
  Weight: 74 kg

DRUGS (12)
  1. HUMULIN REGULAR [Suspect]
     Dosage: UNK, UNKNOWN
     Route: 065
  2. HUMULIN NPH [Suspect]
     Dosage: UNK UNK, UNKNOWN
     Route: 058
  3. HUMULIN NPH [Suspect]
     Dosage: 16 IU, EACH MORNING
     Route: 058
  4. HUMULIN NPH [Suspect]
     Dosage: 10 IU, QD
     Route: 058
  5. HUMULIN NPH [Suspect]
     Dosage: 6 IU, EACH EVENING
     Route: 058
  6. HUMALOG LISPRO [Suspect]
     Dosage: UNK, UNKNOWN
     Route: 058
  7. HUMALOG LISPRO [Suspect]
     Dosage: UNK, QID
     Route: 058
  8. ATENOLOL [Concomitant]
     Dosage: 50 MG, UNKNOWN
     Route: 065
  9. LOSARTAN [Concomitant]
     Dosage: 50 MG, UNKNOWN
     Route: 065
  10. SINVASTATINA [Concomitant]
     Dosage: 40 MG, UNKNOWN
     Route: 065
  11. A.A.S. [Concomitant]
     Dosage: UNK, UNKNOWN
     Route: 065
  12. LORATADINA [Concomitant]
     Dosage: UNK, UNKNOWN
     Route: 065

REACTIONS (3)
  - Exposure during pregnancy [Unknown]
  - Hypoglycaemia [Unknown]
  - Incorrect dose administered [Unknown]
